FAERS Safety Report 25964831 (Version 1)
Quarter: 2025Q4

REPORT INFORMATION
  Report Type: Spontaneous
  Country: EU (occurrence: EU)
  Receive Date: 20251027
  Receipt Date: 20251027
  Transmission Date: 20260117
  Serious: Yes (Hospitalization, Other)
  Sender: PFIZER
  Company Number: None

PATIENT
  Age: 66 Year
  Sex: Male
  Weight: 66 kg

DRUGS (6)
  1. CYTARABINE [Suspect]
     Active Substance: CYTARABINE
     Indication: Acute myeloid leukaemia
     Dosage: 200 MG/M2, 1X/DAY (LYOPHILISATE FOR PARENTERAL (I.V.) USE)
     Route: 042
     Dates: start: 20250613, end: 20250620
  2. CYTARABINE [Suspect]
     Active Substance: CYTARABINE
     Dosage: 200 MG/M2, 1X/DAY (LYOPHILISATE FOR PARENTERAL (I.V.) USE)
     Route: 042
     Dates: start: 20250823, end: 20250825
  3. CYTARABINE [Suspect]
     Active Substance: CYTARABINE
     Dosage: 200 MG/M2, 1X/DAY (LYOPHILISATE FOR PARENTERAL (I.V.) USE)
     Route: 042
     Dates: start: 20251003, end: 20251006
  4. CEFEPIME [Suspect]
     Active Substance: CEFEPIME HYDROCHLORIDE
     Indication: Febrile bone marrow aplasia
     Dosage: 2 G, 3X/DAY
     Route: 042
     Dates: start: 20250619, end: 20250705
  5. CEFEPIME [Suspect]
     Active Substance: CEFEPIME HYDROCHLORIDE
     Dosage: 2 G, 3X/DAY
     Route: 042
     Dates: start: 20250829, end: 20250909
  6. CEFEPIME [Suspect]
     Active Substance: CEFEPIME HYDROCHLORIDE
     Dosage: 2 G, 3X/DAY
     Route: 042
     Dates: start: 20251005

REACTIONS (2)
  - Toxic skin eruption [Recovered/Resolved]
  - Thrombocytopenia [Recovered/Resolved]

NARRATIVE: CASE EVENT DATE: 20250622
